FAERS Safety Report 5359772-4 (Version None)
Quarter: 2007Q2

REPORT INFORMATION
  Report Type: 
  Country: None (occurrence: None)
  Receive Date: 20070616
  Receipt Date: 20070611
  Transmission Date: 20071010
  Serious: Yes (Other)
  Sender: FDA-Public Use
  Company Number: JP-PFIZER INC-2007048304

PATIENT
  Sex: Male

DRUGS (1)
  1. HALCION [Suspect]
     Route: 048

REACTIONS (1)
  - AGGRESSION [None]
